FAERS Safety Report 9281040 (Version 1)
Quarter: 2013Q2

REPORT INFORMATION
  Report Type: Spontaneous
  Country: US (occurrence: None)
  Receive Date: 20130508
  Receipt Date: 20130508
  Transmission Date: 20140414
  Serious: Yes (Hospitalization)
  Sender: FDA-Public Use
  Company Number: None

PATIENT
  Age: 57 Year
  Sex: Male

DRUGS (2)
  1. PEGASYS [Suspect]
     Indication: HEPATITIS C
     Dosage: 180 MCG WEEKLY SQ
     Route: 058
     Dates: start: 20130215, end: 20130424
  2. RIBAVIRIN [Suspect]
     Route: 048
     Dates: start: 20130215, end: 20130424

REACTIONS (3)
  - Pyrexia [None]
  - Renal disorder [None]
  - Red blood cell count decreased [None]
